FAERS Safety Report 14250183 (Version 2)
Quarter: 2017Q4

REPORT INFORMATION
  Report Type: Spontaneous
  Country: CN (occurrence: CN)
  Receive Date: 20171205
  Receipt Date: 20171228
  Transmission Date: 20180321
  Serious: Yes (Other)
  Sender: FDA-Public Use
  Company Number: CN-ROCHE-2034525

PATIENT
  Age: 40 Year
  Sex: Female
  Weight: 60 kg

DRUGS (1)
  1. HERCEPTIN [Suspect]
     Active Substance: TRASTUZUMAB
     Indication: BREAST CANCER
     Dosage: INITIAL DOSE 8MG/KG, MAINTAINED DOSE 6MG/KG
     Route: 041

REACTIONS (2)
  - Pyrexia [Recovered/Resolved]
  - Transaminases increased [Recovered/Resolved]
